FAERS Safety Report 8036519-4 (Version None)
Quarter: 2012Q1

REPORT INFORMATION
  Report Type: 
  Country: None (occurrence: None)
  Receive Date: 20120111
  Receipt Date: 20120106
  Transmission Date: 20120608
  Serious: Yes (Other)
  Sender: FDA-Public Use
  Company Number: US-AMGEN-USASP2012001034

PATIENT
  Age: 55 Year
  Sex: Female

DRUGS (3)
  1. ENBREL [Suspect]
     Indication: SERONEGATIVE ARTHRITIS
     Dosage: 50 MG, QWK
     Dates: start: 20111115
  2. ENBREL [Suspect]
     Indication: SYSTEMIC LUPUS ERYTHEMATOSUS
  3. ENBREL [Suspect]
     Indication: SJOGREN'S SYNDROME

REACTIONS (6)
  - PHOTOPHOBIA [None]
  - INJECTION SITE REACTION [None]
  - DIZZINESS [None]
  - TOOTHACHE [None]
  - EAR INFECTION [None]
  - INJECTION SITE PRURITUS [None]
